FAERS Safety Report 13939659 (Version 1)
Quarter: 2017Q3

REPORT INFORMATION
  Report Type: Report from Study
  Country: DE (occurrence: DE)
  Receive Date: 20170906
  Receipt Date: 20170906
  Transmission Date: 20171127
  Serious: Yes (Hospitalization)
  Sender: FDA-Public Use
  Company Number: DE-ROCHE-1984866

PATIENT
  Age: 53 Year
  Sex: Female

DRUGS (2)
  1. BLINDED OLAPARIB [Suspect]
     Active Substance: OLAPARIB
     Indication: CERVIX CARCINOMA
     Dosage: DATE OF LAST ADMINISTRATION OF BAVACIZUMAB BEFORE EVENT: 05/AUG/2017.
     Route: 065
     Dates: start: 20170327
  2. BEVACIZUMAB. [Suspect]
     Active Substance: BEVACIZUMAB
     Indication: CERVIX CARCINOMA
     Dosage: DATE OF LAST ADMINISTRATION OF BAVACIZUMAB BEFORE EVENT: 31/JUL/2017.
     Route: 065
     Dates: start: 20170327, end: 20170824

REACTIONS (1)
  - Diaphragmatic rupture [Recovered/Resolved]

NARRATIVE: CASE EVENT DATE: 20170805
